FAERS Safety Report 15730207 (Version 3)
Quarter: 2019Q1

REPORT INFORMATION
  Report Type: Report from Study
  Country: US (occurrence: US)
  Receive Date: 20181217
  Receipt Date: 20190219
  Transmission Date: 20190417
  Serious: Yes (Other)
  Sender: FDA-Public Use
  Company Number: PHEH2018US052377

PATIENT
  Sex: Female

DRUGS (1)
  1. SIMBRINZA [Suspect]
     Active Substance: BRIMONIDINE TARTRATE\BRINZOLAMIDE
     Indication: PRODUCT USED FOR UNKNOWN INDICATION
     Route: 065

REACTIONS (12)
  - Gait disturbance [Unknown]
  - Arthralgia [Unknown]
  - Deafness [Unknown]
  - Limb injury [Unknown]
  - Cataract [Unknown]
  - Hypertension [Unknown]
  - Eyelid boil [Unknown]
  - Blindness unilateral [Unknown]
  - Diabetes mellitus [Unknown]
  - Glaucoma [Unknown]
  - Fall [Unknown]
  - Breast disorder [Unknown]
